FAERS Safety Report 14739774 (Version 1)
Quarter: 2018Q2

REPORT INFORMATION
  Report Type: Spontaneous
  Country: US (occurrence: US)
  Receive Date: 20180410
  Receipt Date: 20180410
  Transmission Date: 20180711
  Serious: No
  Sender: FDA-Public Use
  Company Number: US-PFIZER INC-2018145049

PATIENT
  Age: 29 Year
  Sex: Female
  Weight: 70.3 kg

DRUGS (1)
  1. LIOTHYRONINE SODIUM. [Suspect]
     Active Substance: LIOTHYRONINE SODIUM
     Indication: AUTOIMMUNE THYROIDITIS
     Dosage: 10 UG, DAILY
     Route: 048
     Dates: end: 2018

REACTIONS (1)
  - Rash [Recovered/Resolved]
